FAERS Safety Report 6699115-7 (Version None)
Quarter: 2010Q2

REPORT INFORMATION
  Report Type: 
  Country: None (occurrence: None)
  Receive Date: 20100421
  Receipt Date: 20090526
  Transmission Date: 20101027
  Serious: Yes (Other)
  Sender: FDA-Public Use
  Company Number: APP200900294

PATIENT

DRUGS (4)
  1. HEPARIN SODIUM INJECTION [Suspect]
     Indication: CARDIAC OPERATION
     Dosage: 22000 USP UNITS, ONCE ; 10000 USP UNITS, ONCE ; 15000 USP UNITS, ONCE
     Dates: start: 20090526, end: 20090526
  2. HEPARIN SODIUM INJECTION [Suspect]
     Indication: CARDIAC OPERATION
     Dosage: 22000 USP UNITS, ONCE ; 10000 USP UNITS, ONCE ; 15000 USP UNITS, ONCE
     Dates: start: 20090526, end: 20090526
  3. HEPARIN SODIUM INJECTION [Suspect]
     Indication: CARDIAC OPERATION
     Dosage: 22000 USP UNITS, ONCE ; 10000 USP UNITS, ONCE ; 15000 USP UNITS, ONCE
     Dates: start: 20090526, end: 20090526
  4. HEPARIN SODIUM INJECTION [Suspect]

REACTIONS (1)
  - DRUG INEFFECTIVE [None]
